FAERS Safety Report 4624530-2 (Version None)
Quarter: 2005Q1

REPORT INFORMATION
  Report Type: 
  Country: None (occurrence: None)
  Receive Date: 20050331
  Receipt Date: 20050317
  Transmission Date: 20050727
  Serious: Yes (Death)
  Sender: FDA-Public Use
  Company Number: CH-MERCK-0503CHE00020

PATIENT
  Age: 49 Year
  Sex: Male

DRUGS (12)
  1. CANCIDAS [Suspect]
     Indication: ASPERGILLOSIS
     Route: 042
  2. MYCOPHENOLATE MOFETIL [Concomitant]
     Route: 065
  3. MYCOPHENOLATE MOFETIL [Concomitant]
     Route: 065
  4. PREDNISONE [Suspect]
     Route: 065
  5. ANTILYMPHOCYTE IMMUNOGLOBULIN [Concomitant]
     Route: 065
  6. GEMTUZUMAB ZOGAMICIN [Concomitant]
     Route: 065
  7. TACROLIMUS [Suspect]
     Route: 065
  8. TACROLIMUS [Suspect]
     Route: 065
  9. TACROLIMUS [Suspect]
     Route: 065
  10. AMPHOTERICIN B [Concomitant]
     Route: 065
  11. FLUCYTOSINE [Concomitant]
     Route: 065
  12. ITRACONAZOLE [Suspect]
     Route: 065

REACTIONS (6)
  - ASPERGILLOSIS [None]
  - BLOOD CREATININE INCREASED [None]
  - CARDIOGENIC SHOCK [None]
  - DRUG INEFFECTIVE [None]
  - DRUG INTERACTION [None]
  - LEUKOPENIA [None]
